FAERS Safety Report 8805398 (Version 2)
Quarter: 2012Q4

REPORT INFORMATION
  Report Type: 
  Country: DE (occurrence: DE)
  Receive Date: 20120924
  Receipt Date: 20121010
  Transmission Date: 20130627
  Serious: Yes (Hospitalization)
  Sender: FDA-Public Use
  Company Number: DE-TEVA-358705GER

PATIENT
  Age: 72 Year
  Sex: Male

DRUGS (2)
  1. PREDNISOLONE [Suspect]
     Dosage: 20 Milligram Daily;
     Route: 065
  2. METHOTREXATE [Concomitant]
     Dosage: 15 mg/week
     Route: 058

REACTIONS (2)
  - Cytomegalovirus oesophagitis [Recovering/Resolving]
  - Excoriation [Unknown]
